FAERS Safety Report 16205068 (Version 2)
Quarter: 2019Q4

REPORT INFORMATION
  Report Type: Spontaneous
  Country: US (occurrence: US)
  Receive Date: 20190416
  Receipt Date: 20191017
  Transmission Date: 20200122
  Serious: No
  Sender: FDA-Public Use
  Company Number: US-CHILTERN-US-2019-000361

PATIENT

DRUGS (11)
  1. FINASTERIDE. [Concomitant]
     Active Substance: FINASTERIDE
     Indication: URINE FLOW DECREASED
     Dosage: 1 PER DAY, 7-8 YEARS AGO
     Route: 048
  2. RHOPRESSA [Suspect]
     Active Substance: NETARSUDIL MESYLATE
     Indication: GLAUCOMA
     Dosage: 1 DROP RIGHT EYE NIGHTLY
     Route: 047
     Dates: start: 201806, end: 20190115
  3. ILEVRO [Concomitant]
     Active Substance: NEPAFENAC
     Dosage: 1 DROP RIGHT EYE, QAM
     Route: 047
     Dates: start: 20190117
  4. SYMBICORT [Concomitant]
     Active Substance: BUDESONIDE\FORMOTEROL FUMARATE DIHYDRATE
     Indication: ASTHMA
     Dosage: 2 PUFFS MORNING AND EVENING, 15 YEARS
     Route: 045
  5. TAMSULOSIN [Concomitant]
     Active Substance: TAMSULOSIN
     Indication: URINE FLOW DECREASED
     Dosage: 1 PER DAY, 7-8 YEARS AGO
     Route: 048
  6. VYZULTA [Concomitant]
     Active Substance: LATANOPROSTENE BUNOD
     Dosage: UNK
  7. DUREZOL [Concomitant]
     Active Substance: DIFLUPREDNATE
     Dosage: 1 DROP RIGHT EYE, Q2H
     Route: 047
     Dates: start: 20190117
  8. ESCITALOPRAM [Concomitant]
     Active Substance: ESCITALOPRAM OXALATE
     Indication: DEPRESSION
     Dosage: HALF PER DAY, 16 YEARS AGO
     Route: 048
  9. LUMIGAN [Concomitant]
     Active Substance: BIMATOPROST
     Dosage: UNK
  10. BESIVANCE [Concomitant]
     Active Substance: BESIFLOXACIN
     Dosage: 1 DROP RIGHT EYE, QID
     Dates: start: 20190117
  11. TRAVATAN [Concomitant]
     Active Substance: TRAVOPROST
     Dosage: UNK

REACTIONS (1)
  - Drug ineffective [Unknown]

NARRATIVE: CASE EVENT DATE: 20190103
